FAERS Safety Report 4765569-6 (Version None)
Quarter: 2005Q3

REPORT INFORMATION
  Report Type: 
  Country: None (occurrence: None)
  Receive Date: 20050906
  Receipt Date: 20050823
  Transmission Date: 20060218
  Serious: Yes (Hospitalization)
  Sender: FDA-Public Use
  Company Number: EWC050845541

PATIENT
  Age: 75 Year
  Sex: Female

DRUGS (4)
  1. FORTEO [Suspect]
     Indication: OSTEOPOROSIS
     Dosage: 20 UG/1 DAY
     Dates: start: 20050708
  2. TERMALGIN (PARACETAMOL) [Concomitant]
  3. GELOCATIL (PARACETAMOL) [Concomitant]
  4. MORPHINE [Concomitant]

REACTIONS (2)
  - INTESTINAL OBSTRUCTION [None]
  - PYREXIA [None]
